FAERS Safety Report 7383964-6 (Version None)
Quarter: 2011Q1

REPORT INFORMATION
  Report Type: 
  Country: None (occurrence: None)
  Receive Date: 20110330
  Receipt Date: 20110316
  Transmission Date: 20110831
  Serious: Yes (Hospitalization)
  Sender: FDA-Public Use
  Company Number: JP-WATSON-2011-03634

PATIENT
  Age: 77 Year
  Sex: Female

DRUGS (2)
  1. ETIDRONIC ACID [Suspect]
     Indication: OSTEOPOROSIS
     Dosage: 4.8 G, EVERY 12 WEEKS
     Dates: start: 19990101, end: 20011001
  2. ALENDRONATE SODIUM [Suspect]
     Indication: OSTEOPOROSIS
     Dosage: 4.8 G, Q12WEEKS
     Dates: start: 19990101, end: 20011001

REACTIONS (1)
  - FEMUR FRACTURE [None]
